FAERS Safety Report 9470508 (Version 2)
Quarter: 2013Q4

REPORT INFORMATION
  Report Type: Report from Study
  Country: CA (occurrence: CA)
  Receive Date: 20130822
  Receipt Date: 20131204
  Transmission Date: 20140711
  Serious: Yes (Other)
  Sender: FDA-Public Use
  Company Number: CA-JNJFOC-20130808129

PATIENT
  Age: 55 Year
  Sex: Female
  Weight: 62.3 kg

DRUGS (6)
  1. REMICADE [Suspect]
     Indication: CROHN^S DISEASE
     Route: 042
     Dates: start: 20100517
  2. REMICADE [Suspect]
     Indication: CROHN^S DISEASE
     Route: 042
     Dates: start: 20130812, end: 20131121
  3. REACTINE [Concomitant]
     Indication: PREMEDICATION
     Dosage: 5 DAYS BEFORE THE INFUSION
     Route: 065
  4. TYLENOL [Concomitant]
     Indication: PREMEDICATION
     Dosage: 5 DAYS BEFORE THE INFUSION
     Route: 065
  5. SOLU MEDROL [Concomitant]
     Indication: PREMEDICATION
     Route: 042
     Dates: start: 20130812
  6. BENADRYL [Concomitant]
     Indication: PREMEDICATION
     Route: 042
     Dates: start: 20130812

REACTIONS (3)
  - Infusion related reaction [Unknown]
  - Tachycardia [Recovering/Resolving]
  - Respiratory disorder [Unknown]
